FAERS Safety Report 7573965-7 (Version None)
Quarter: 2011Q2

REPORT INFORMATION
  Report Type: 
  Country: None (occurrence: None)
  Receive Date: 20110627
  Receipt Date: 20110607
  Transmission Date: 20111010
  Serious: Yes (Hospitalization)
  Sender: FDA-Public Use
  Company Number: FR-BIOALLPH-FR11S00021

PATIENT
  Age: 49 Year
  Sex: Male

DRUGS (3)
  1. MICONAZOLE [Suspect]
     Indication: PRODUCT USED FOR UNKNOWN INDICATION
     Dates: start: 20110511, end: 20110521
  2. PIPERACILLIN AND TAZOBACTAM [Suspect]
     Indication: LUNG DISORDER
     Dates: start: 20110504, end: 20110521
  3. AZITHROMYCIN [Suspect]
     Indication: LUNG DISORDER
     Dates: start: 20110504, end: 20110521

REACTIONS (4)
  - GRANULOCYTES MATURATION ARREST [None]
  - THROMBOCYTOPENIA [None]
  - NEUTROPENIA [None]
  - PYREXIA [None]
